FAERS Safety Report 17338030 (Version 2)
Quarter: 2020Q1

REPORT INFORMATION
  Report Type: Spontaneous
  Country: IT (occurrence: IT)
  Receive Date: 20200129
  Receipt Date: 20200311
  Transmission Date: 20200409
  Serious: Yes (Death, Life-Threatening, Hospitalization, Other)
  Sender: FDA-Public Use
  Company Number: IT-ACCORD-170876

PATIENT
  Age: 40 Year
  Sex: Male

DRUGS (20)
  1. VALPROIC ACID. [Interacting]
     Active Substance: VALPROIC ACID
     Indication: MANIA
     Dosage: DOSED WITHIN RECOMMENDED RANGE, DAY 1 AND 2
     Route: 048
  2. HALOPERIDOL. [Interacting]
     Active Substance: HALOPERIDOL
     Indication: MANIA
     Dosage: DOSED WITHIN RECOMMENDED RANGE, ON DAY 5
     Route: 048
  3. PROMAZINE [Interacting]
     Active Substance: PROMAZINE
     Indication: MANIA
     Dosage: DOSED WITHIN RECOMMENDED RANGE, DAY 3 AND DAY 4, DROPS
     Route: 048
  4. HALOPERIDOL. [Interacting]
     Active Substance: HALOPERIDOL
     Indication: MANIA
     Dosage: ON DAY 4
     Route: 048
  5. CLOZAPINE. [Interacting]
     Active Substance: CLOZAPINE
     Indication: MANIA
     Dosage: DAY 2
     Route: 048
  6. CHLORPHENAMINE/CHLORPHENAMINE MALEATE/CHLORPHENAMINE RESINATE/CHLORPHENAMINE TANNATE [Concomitant]
     Active Substance: CHLORPHENIRAMINE
     Indication: BIPOLAR DISORDER
     Dosage: DAY 1
     Route: 042
  7. MIDAZOLAM HYDROCHLORIDE. [Concomitant]
     Active Substance: MIDAZOLAM HYDROCHLORIDE
     Indication: BIPOLAR DISORDER
     Dosage: DAY 1
     Route: 042
  8. DELORAZEPAM [Concomitant]
     Active Substance: DELORAZEPAM
     Indication: BIPOLAR DISORDER
     Dosage: DAY 2
     Route: 030
  9. DELORAZEPAM [Concomitant]
     Active Substance: DELORAZEPAM
     Indication: BIPOLAR DISORDER
     Dosage: DAY 3, 4 AND 5
     Route: 048
  10. PROMAZINE [Interacting]
     Active Substance: PROMAZINE
     Indication: MANIA
     Dosage: DAY 5, DROPS
     Route: 048
  11. CLOZAPINE. [Suspect]
     Active Substance: CLOZAPINE
     Indication: MANIA
     Dosage: DOSED WITHIN RECOMMENDED RANGE, DAY 3 AND DAY 5
     Route: 048
  12. CHLORPROMAZINE. [Concomitant]
     Active Substance: CHLORPROMAZINE
     Indication: BIPOLAR DISORDER
     Dosage: DAY 1
     Route: 042
  13. CLOTIAPINE [Concomitant]
     Active Substance: CLOTHIAPINE
     Indication: BIPOLAR DISORDER
     Dosage: DAY 1 AND 2
     Route: 030
  14. CLOZAPINE. [Interacting]
     Active Substance: CLOZAPINE
     Indication: MANIA
     Dosage: DAY 4
     Route: 048
  15. MIDAZOLAM HYDROCHLORIDE. [Concomitant]
     Active Substance: MIDAZOLAM HYDROCHLORIDE
     Indication: BIPOLAR DISORDER
     Dosage: DAY 1
     Route: 042
  16. VALPROIC ACID. [Interacting]
     Active Substance: VALPROIC ACID
     Indication: MANIA
     Dosage: DAY 3, 4 AND 5
     Route: 048
  17. CLOTIAPINE [Concomitant]
     Active Substance: CLOTHIAPINE
     Indication: BIPOLAR DISORDER
     Dosage: DAY 3
     Route: 030
  18. DELORAZEPAM [Concomitant]
     Active Substance: DELORAZEPAM
     Indication: BIPOLAR DISORDER
     Dosage: DAY 1
     Route: 042
  19. HALOPERIDOL. [Interacting]
     Active Substance: HALOPERIDOL
     Indication: MANIA
     Dosage: ON DAY 1
     Route: 042
  20. CHLORPROMAZINE. [Concomitant]
     Active Substance: CHLORPROMAZINE
     Indication: BIPOLAR DISORDER
     Dosage: DAY 2
     Route: 030

REACTIONS (20)
  - Cardiac arrest [Fatal]
  - Skin laceration [Unknown]
  - Pulmonary congestion [Unknown]
  - Cardiac hypertrophy [Fatal]
  - Pulmonary oedema [Unknown]
  - Drug interaction [Fatal]
  - Extravasation blood [Unknown]
  - Arteriosclerosis coronary artery [Fatal]
  - Kidney congestion [Unknown]
  - Drug level increased [Fatal]
  - Coronary artery stenosis [Fatal]
  - Hepatic congestion [Unknown]
  - Toxicity to various agents [Fatal]
  - Brain oedema [Unknown]
  - Head injury [Unknown]
  - Splenic fibrosis [Unknown]
  - Cardiac valve sclerosis [Fatal]
  - Syncope [Unknown]
  - Myocardial ischaemia [Fatal]
  - Hepatic steatosis [Unknown]
